FAERS Safety Report 5118329-0 (Version None)
Quarter: 2006Q4

REPORT INFORMATION
  Report Type: 
  Country: None (occurrence: None)
  Receive Date: 20061002
  Receipt Date: 20060522
  Transmission Date: 20070319
  Serious: Yes (Other)
  Sender: FDA-Public Use
  Company Number: RU-AVENTIS-200612907EU

PATIENT
  Age: 49 Year
  Sex: Male
  Weight: 69 kg

DRUGS (4)
  1. TRENTAL [Suspect]
     Indication: ANGIOPATHY
     Dosage: DOSE: UNKNOWN DOSE
     Route: 042
     Dates: start: 20060515, end: 20060517
  2. TRENTAL [Suspect]
  3. ENALAPRIL MALEAT [Concomitant]
     Indication: HYPERTENSION
     Route: 048
     Dates: end: 20060523
  4. AMLODIPINE [Concomitant]
     Indication: HYPERTENSION
     Route: 048
     Dates: start: 20060523

REACTIONS (5)
  - ABDOMINAL PAIN UPPER [None]
  - HEADACHE [None]
  - HYPOAESTHESIA [None]
  - LOSS OF CONSCIOUSNESS [None]
  - TACHYCARDIA [None]
